FAERS Safety Report 13102660 (Version 1)
Quarter: 2017Q1

REPORT INFORMATION
  Report Type: Spontaneous
  Country: IT (occurrence: IT)
  Receive Date: 20170110
  Receipt Date: 20170110
  Transmission Date: 20170428
  Serious: Yes (Life-Threatening)
  Sender: FDA-Public Use
  Company Number: IT-BAYER-2016-178335

PATIENT
  Age: 41 Year
  Sex: Female
  Weight: 58 kg

DRUGS (1)
  1. JAYDESS [Suspect]
     Active Substance: LEVONORGESTREL
     Dosage: 14 MCG/24HR, CONT
     Route: 015
     Dates: start: 20160415, end: 20160727

REACTIONS (3)
  - Ectopic pregnancy with contraceptive device [Recovered/Resolved]
  - Drug ineffective [None]
  - Peritoneal haemorrhage [Recovered/Resolved]

NARRATIVE: CASE EVENT DATE: 20160727
